FAERS Safety Report 23851917 (Version 1)
Quarter: 2024Q2

REPORT INFORMATION
  Report Type: Spontaneous
  Country: US (occurrence: US)
  Receive Date: 20240514
  Receipt Date: 20240514
  Transmission Date: 20240716
  Serious: Yes (Other)
  Sender: FDA-Public Use
  Company Number: US-Accord-423839

PATIENT
  Sex: Male

DRUGS (1)
  1. LEUPROLIDE [Suspect]
     Active Substance: LEUPROLIDE
     Indication: Prostate cancer
     Dates: start: 202310

REACTIONS (4)
  - Erectile dysfunction [Unknown]
  - Hot flush [Unknown]
  - Fatigue [Unknown]
  - Middle insomnia [Unknown]
